FAERS Safety Report 23755264 (Version 1)
Quarter: 2024Q2

REPORT INFORMATION
  Report Type: Other
  Country: DE (occurrence: None)
  Receive Date: 20240418
  Receipt Date: 20240418
  Transmission Date: 20240715
  Serious: Yes (Death, Hospitalization)
  Sender: FDA-Public Use
  Company Number: DE-ROCHE-3548002

PATIENT
  Age: 35 Year
  Sex: Male
  Weight: 49 kg

DRUGS (1)
  1. EVRYSDI [Suspect]
     Active Substance: RISDIPLAM
     Indication: Spinal muscular atrophy
     Dosage: LAST DOSE: 09/JAN/2024
     Route: 048
     Dates: start: 20230426

REACTIONS (3)
  - Pneumonia streptococcal [Recovered/Resolved]
  - Diarrhoea haemorrhagic [Recovered/Resolved]
  - Post procedural haemorrhage [Fatal]

NARRATIVE: CASE EVENT DATE: 20231208
